FAERS Safety Report 9741130 (Version 1)
Quarter: 2013Q4

REPORT INFORMATION
  Report Type: Spontaneous
  Country: IT (occurrence: IT)
  Receive Date: 20131209
  Receipt Date: 20131209
  Transmission Date: 20140711
  Serious: Yes (Other)
  Sender: FDA-Public Use
  Company Number: IT-ACTAVIS-2013-22734

PATIENT
  Age: 74 Year
  Sex: Male

DRUGS (4)
  1. FLUOROURACIL (UNKNOWN) [Suspect]
     Indication: OESOPHAGEAL CARCINOMA
     Dosage: 1 DF, PER CYCLE
     Route: 042
     Dates: start: 20130729, end: 20130729
  2. OXALIPLATIN (UNKNOWN) [Suspect]
     Indication: OESOPHAGEAL CARCINOMA
     Dosage: 1 DF, PER CYCLE
     Route: 042
     Dates: start: 20130729, end: 20130729
  3. FOLIC ACID (UNKNOWN) [Suspect]
     Indication: OESOPHAGEAL CARCINOMA
     Dosage: 1 DF, PER CYCLE
     Route: 042
     Dates: start: 20130729, end: 20130729
  4. LEVOPRAID                          /00314301/ [Concomitant]
     Indication: PRODUCT USED FOR UNKNOWN INDICATION
     Dosage: 25 MG, UNK

REACTIONS (2)
  - Anaemia [Recovering/Resolving]
  - Melaena [Recovering/Resolving]
